FAERS Safety Report 10784705 (Version 1)
Quarter: 2015Q1

REPORT INFORMATION
  Report Type: Spontaneous
  Country: US (occurrence: US)
  Receive Date: 20150211
  Receipt Date: 20150211
  Transmission Date: 20150721
  Serious: Yes (Other)
  Sender: FDA-Public Use
  Company Number: US-ASTRAZENECA-2015SE12039

PATIENT
  Age: 48 Year
  Sex: Male

DRUGS (2)
  1. BICALUTAMIDE. [Suspect]
     Active Substance: BICALUTAMIDE
     Indication: PROSTATE CANCER METASTATIC
     Route: 048
  2. LUEPROLIDE [Concomitant]
     Indication: PROSTATE CANCER METASTATIC

REACTIONS (1)
  - Jaundice cholestatic [Recovered/Resolved]
